FAERS Safety Report 6892543-6 (Version None)
Quarter: 2010Q3

REPORT INFORMATION
  Report Type: 
  Country: None (occurrence: None)
  Receive Date: 20100731
  Receipt Date: 20080703
  Transmission Date: 20110219
  Serious: Yes (Other)
  Sender: FDA-Public Use
  Company Number: US-PFIZER INC-2008048293

PATIENT
  Sex: Male
  Weight: 74.4 kg

DRUGS (5)
  1. NEURONTIN [Suspect]
     Indication: PAIN
  2. LYRICA [Suspect]
     Indication: PAIN
     Dates: start: 20071101
  3. WARFARIN SODIUM [Concomitant]
  4. PRAVACHOL [Concomitant]
  5. VITAMINS [Concomitant]

REACTIONS (2)
  - DRUG INEFFECTIVE [None]
  - SYNCOPE [None]
